FAERS Safety Report 7812134-X (Version None)
Quarter: 2011Q4

REPORT INFORMATION
  Report Type: 
  Country: None (occurrence: None)
  Receive Date: 20111013
  Receipt Date: 20111005
  Transmission Date: 20120403
  Serious: Yes (Hospitalization, Congenital Anomaly, Other)
  Sender: FDA-Public Use
  Company Number: DE-TEVA-303874GER

PATIENT
  Sex: Female
  Weight: 1.99 kg

DRUGS (3)
  1. ATENOLOL [Suspect]
     Dosage: 100 MILLIGRAM;
     Route: 064
     Dates: start: 20071230, end: 20080918
  2. ZYTRIM [Suspect]
     Route: 064
  3. FOLIO [Concomitant]
     Dosage: .4 MILLIGRAM;
     Route: 064

REACTIONS (3)
  - CONGENITAL TRICUSPID VALVE INCOMPETENCE [None]
  - SMALL FOR DATES BABY [None]
  - ATRIAL SEPTAL DEFECT [None]
